FAERS Safety Report 12561891 (Version 2)
Quarter: 2016Q3

REPORT INFORMATION
  Report Type: Spontaneous
  Country: ES (occurrence: ES)
  Receive Date: 20160715
  Receipt Date: 20160721
  Transmission Date: 20161109
  Serious: Yes (Other)
  Sender: FDA-Public Use
  Company Number: ES-009507513-1607ESP006892

PATIENT
  Age: 68 Year
  Sex: Female

DRUGS (2)
  1. RISTFOR [Suspect]
     Active Substance: METFORMIN HYDROCHLORIDE\SITAGLIPTIN PHOSPHATE
     Indication: TYPE 2 DIABETES MELLITUS
     Dosage: 1 DOSAGE FORM, TWO TIMES PER DAY
     Route: 048
     Dates: start: 20160526, end: 20160607
  2. METFORMIN [Concomitant]
     Active Substance: METFORMIN HYDROCHLORIDE
     Dosage: 650 MG, BID
     Route: 048
     Dates: start: 20160512, end: 20160525

REACTIONS (3)
  - Hypoglycaemia [Recovered/Resolved]
  - Pruritus [Recovered/Resolved]
  - Bronchospasm [Recovered/Resolved]

NARRATIVE: CASE EVENT DATE: 20160601
